FAERS Safety Report 10952924 (Version 5)
Quarter: 2015Q2

REPORT INFORMATION
  Report Type: Spontaneous
  Country: JP (occurrence: None)
  Receive Date: 20150323
  Receipt Date: 20150507
  Transmission Date: 20150821
  Serious: Yes (Hospitalization, Other)
  Sender: FDA-Public Use
  Company Number: ADR-2015-00553

PATIENT
  Age: 9 Year
  Sex: Female
  Weight: 17 kg

DRUGS (5)
  1. TERNELIN GRANULE [Suspect]
     Active Substance: TIZANIDINE
     Dosage: GASTROSOMY / 8 MG / UNKNOWN / DETENTE
  2. DIAPP SUPPOSITORY [Suspect]
     Active Substance: DIAZEPAM
     Dosage: RECTAL / 26MG / UNKNOWN / CONTINUING / DETENTE?
     Route: 054
  3. RIVOTRIL [Suspect]
     Active Substance: CLONAZEPAM
     Dosage: GASTROSOMY / 15M / UNKNOWN / DETENTE??
  4. PHENOBARBITAL POWDER [Suspect]
     Active Substance: PHENOBARBITAL
     Dosage: GASTROSOMY / 240MG / UNKNOWN / CONTINUING / ANTICONVULSANT
  5. GABALON INTRATHECAL 0.05% [Suspect]
     Active Substance: BACLOFEN
     Indication: CEREBRAL PALSY
     Dosage: 360MCG/DAY

REACTIONS (6)
  - Enterococcal infection [None]
  - Device infusion issue [None]
  - Device malfunction [None]
  - Pyelonephritis [None]
  - Neurogenic bladder [None]
  - Hypotonic urinary bladder [None]
